FAERS Safety Report 23223706 (Version 2)
Quarter: 2024Q2

REPORT INFORMATION
  Report Type: Spontaneous
  Country: DE (occurrence: DE)
  Receive Date: 20231124
  Receipt Date: 20240419
  Transmission Date: 20240716
  Serious: Yes (Hospitalization, Other)
  Sender: FDA-Public Use
  Company Number: DE-002147023-NVSC2023DE247186

PATIENT
  Sex: Female
  Weight: 53 kg

DRUGS (6)
  1. AIMOVIG [Suspect]
     Active Substance: ERENUMAB-AOOE
     Indication: Migraine
     Dosage: UNK, QMO
     Route: 065
     Dates: start: 201903
  2. JODINAT [Concomitant]
     Indication: Thyroidectomy
     Dosage: UNK, QD
     Route: 065
     Dates: start: 201010
  3. FLUOXETINE [Concomitant]
     Active Substance: FLUOXETINE HYDROCHLORIDE
     Indication: Depression
     Dosage: UNK, QD
     Route: 065
     Dates: start: 2006
  4. FLUOXETINE [Concomitant]
     Active Substance: FLUOXETINE HYDROCHLORIDE
     Indication: Pain
  5. CHLORMADINONE [Concomitant]
     Active Substance: CHLORMADINONE
     Indication: Hormone replacement therapy
     Dosage: UNK
     Route: 065
  6. Estramon [Concomitant]
     Indication: Hormone replacement therapy
     Dosage: UNK
     Route: 065

REACTIONS (3)
  - Appendix disorder [Recovering/Resolving]
  - Faeces hard [Not Recovered/Not Resolved]
  - Dyschezia [Unknown]

NARRATIVE: CASE EVENT DATE: 20190301
